FAERS Safety Report 4670021-2 (Version None)
Quarter: 2005Q2

REPORT INFORMATION
  Report Type: 
  Country: None (occurrence: None)
  Receive Date: 20050523
  Receipt Date: 20050511
  Transmission Date: 20051028
  Serious: Yes (Hospitalization)
  Sender: FDA-Public Use
  Company Number: TPA2005A00549

PATIENT
  Age: 59 Year
  Sex: Female

DRUGS (3)
  1. ACTOS [Suspect]
     Indication: DIABETES MELLITUS
     Dosage: 1 IN 1 D PER ORAL
     Route: 048
  2. HUMALOG [Suspect]
     Indication: DIABETES MELLITUS
     Dosage: 25 IU, 2 IN 1 D PER ORAL
     Route: 048
     Dates: start: 19960101
  3. HUMULIN N [Suspect]
     Indication: DIABETES MELLITUS
     Dosage: 70 UNITS IN AM 30 UNITS IN PM, 1 IN 1 D, SUBCUTANEOUS
     Route: 058
     Dates: start: 19820101

REACTIONS (7)
  - ABNORMAL BEHAVIOUR [None]
  - CONFUSIONAL STATE [None]
  - DEPRESSED LEVEL OF CONSCIOUSNESS [None]
  - DIABETES MELLITUS INADEQUATE CONTROL [None]
  - HYPOGLYCAEMIA [None]
  - INCORRECT DOSE ADMINISTERED [None]
  - UTERINE CANCER [None]
